FAERS Safety Report 5506415-2 (Version None)
Quarter: 2007Q4

REPORT INFORMATION
  Report Type: 
  Country: None (occurrence: None)
  Receive Date: 20071101
  Receipt Date: 20071101
  Transmission Date: 20080405
  Serious: Yes (Death)
  Sender: FDA-Public Use
  Company Number: None

PATIENT
  Age: 45 Year
  Sex: Male
  Weight: 86.1834 kg

DRUGS (1)
  1. TAMBOCOR [Suspect]
     Indication: HEART RATE IRREGULAR
     Dosage: 150MG  BID  PO
     Route: 048
     Dates: start: 20010201, end: 20040815

REACTIONS (1)
  - DEATH [None]
